FAERS Safety Report 13879814 (Version 1)
Quarter: 2017Q3

REPORT INFORMATION
  Report Type: Spontaneous
  Country: FR (occurrence: FR)
  Receive Date: 20170818
  Receipt Date: 20170818
  Transmission Date: 20171127
  Serious: Yes (Hospitalization)
  Sender: FDA-Public Use
  Company Number: FR-JNJFOC-20170809005

PATIENT
  Age: 57 Year
  Sex: Male

DRUGS (6)
  1. RISPERDAL [Suspect]
     Active Substance: RISPERIDONE
     Indication: MENTAL DISORDER
     Dosage: ADMINISTRATION SCHEME 1-0-1
     Route: 048
  2. DIAZEPAM. [Suspect]
     Active Substance: DIAZEPAM
     Indication: MENTAL DISORDER
     Dosage: ADMINISTRATION SCHEME 1-0-1
     Route: 048
  3. LOXAPAC [Suspect]
     Active Substance: LOXAPINE SUCCINATE
     Indication: MENTAL DISORDER
     Dosage: ADMINISTRATION SCHEME 0-0-1-1
     Route: 048
  4. IMOVANE [Suspect]
     Active Substance: ZOPICLONE
     Indication: MENTAL DISORDER
     Dosage: ADMINISTRATION SCHEME 0-0-0-1
     Route: 048
  5. PAROXETINE HCL [Concomitant]
     Active Substance: PAROXETINE HYDROCHLORIDE
     Indication: MENTAL DISORDER
     Dosage: ADMINISTRATION SCHEME 1-0-1
     Route: 048
  6. THERALENE [Suspect]
     Active Substance: TRIMEPRAZINE
     Indication: MENTAL DISORDER
     Dosage: STRENGTH-5 MG, ADMINISTRATION SCHEME 0-0-0-2
     Route: 048

REACTIONS (1)
  - Congestive cardiomyopathy [Not Recovered/Not Resolved]

NARRATIVE: CASE EVENT DATE: 20170714
